FAERS Safety Report 12267297 (Version 4)
Quarter: 2016Q2

REPORT INFORMATION
  Report Type: Report from Study
  Country: MX (occurrence: MX)
  Receive Date: 20160414
  Receipt Date: 20160517
  Transmission Date: 20160815
  Serious: Yes (Death)
  Sender: FDA-Public Use
  Company Number: PHHY2016MX049059

PATIENT
  Age: 92 Year
  Sex: Female

DRUGS (1)
  1. EXFORGE [Suspect]
     Active Substance: AMLODIPINE BESYLATE\VALSARTAN
     Indication: HYPERTENSION
     Dosage: 1 DF (AMLODIPINE 5 MG AND VALSARTAN 320 MG), QD
     Route: 065
     Dates: end: 20160326

REACTIONS (6)
  - Blood glucose abnormal [Not Recovered/Not Resolved]
  - Renal failure [Fatal]
  - Blood pressure abnormal [Fatal]
  - Drug hypersensitivity [Unknown]
  - Blood pressure fluctuation [Fatal]
  - Hypertension [Fatal]

NARRATIVE: CASE EVENT DATE: 201602
